FAERS Safety Report 8877614 (Version 1)
Quarter: 2012Q4

REPORT INFORMATION
  Report Type: Spontaneous
  Country: US (occurrence: None)
  Receive Date: 20121031
  Receipt Date: 20121031
  Transmission Date: 20130627
  Serious: No
  Sender: FDA-Public Use
  Company Number: None

PATIENT
  Age: 56 Year
  Sex: Female
  Weight: 71.67 kg

DRUGS (2)
  1. ESTRADIOL [Suspect]
     Indication: HYSTERECTOMY
     Dosage: Two tablets 50 days with this refill
     Route: 048
  2. ESTRADIOL [Suspect]
     Indication: OOPHORECTOMY
     Dosage: Two tablets 50 days with this refill
     Route: 048

REACTIONS (4)
  - Product formulation issue [None]
  - Drug ineffective [None]
  - Menopausal symptoms [None]
  - Product substitution issue [None]
